FAERS Safety Report 10403746 (Version 1)
Quarter: 2014Q3

REPORT INFORMATION
  Report Type: Spontaneous
  Country: US (occurrence: US)
  Receive Date: 20140822
  Receipt Date: 20140822
  Transmission Date: 20150326
  Serious: No
  Sender: FDA-Public Use
  Company Number: US-NOVEN-14US009587

PATIENT
  Age: 61 Year
  Sex: Female

DRUGS (4)
  1. PROMETRIUM [Concomitant]
     Active Substance: PROGESTERONE
     Dosage: 100 MG, UNK
     Dates: start: 2014
  2. MINIVELLE [Suspect]
     Active Substance: ESTRADIOL
     Dosage: 0.075 MG, UNK
     Route: 062
     Dates: start: 2014, end: 2014
  3. MINIVELLE [Suspect]
     Active Substance: ESTRADIOL
     Indication: VULVOVAGINAL DRYNESS
     Dosage: 0.05 MG, EVERY 4 DAYS
     Route: 062
     Dates: start: 2014
  4. PROMETRIUM [Concomitant]
     Active Substance: PROGESTERONE
     Dosage: 200 MG, UNK
     Dates: end: 2014

REACTIONS (5)
  - Inappropriate schedule of drug administration [Not Recovered/Not Resolved]
  - Breast tenderness [Recovered/Resolved]
  - Off label use [Not Recovered/Not Resolved]
  - Vaginal haemorrhage [Recovered/Resolved]
  - Oestradiol decreased [Not Recovered/Not Resolved]

NARRATIVE: CASE EVENT DATE: 2014
